FAERS Safety Report 5240274-0 (Version None)
Quarter: 2007Q1

REPORT INFORMATION
  Report Type: 
  Country: None (occurrence: None)
  Receive Date: 20070219
  Receipt Date: 20070209
  Transmission Date: 20070707
  Serious: Yes (Death, Congenital Anomaly)
  Sender: FDA-Public Use
  Company Number: CH-ELI_LILLY_AND_COMPANY-CH200702002010

PATIENT
  Sex: Male
  Weight: 1.855 kg

DRUGS (3)
  1. ZYPREXA [Suspect]
     Indication: SCHIZOPHRENIA
     Dosage: UNK, UNK
     Route: 015
     Dates: end: 20060703
  2. CIPRALEX [Concomitant]
     Indication: DEPRESSION
     Route: 015
     Dates: end: 20051209
  3. VITAMINS WITH MINERALS [Concomitant]
     Indication: PREGNANCY
     Dosage: UNK, UNK
     Route: 015
     Dates: end: 20060703

REACTIONS (5)
  - CHROMOSOME ABNORMALITY [None]
  - CRI DU CHAT SYNDROME [None]
  - DRUG EXPOSURE DURING PREGNANCY [None]
  - PREMATURE BABY [None]
  - TRISOMY 18 [None]
